FAERS Safety Report 7671245-2 (Version None)
Quarter: 2011Q3

REPORT INFORMATION
  Report Type: 
  Country: None (occurrence: None)
  Receive Date: 20110809
  Receipt Date: 20110726
  Transmission Date: 20111222
  Serious: Yes (Hospitalization, Other)
  Sender: FDA-Public Use
  Company Number: US-ELI_LILLY_AND_COMPANY-US201012000963

PATIENT
  Sex: Female
  Weight: 79 kg

DRUGS (11)
  1. FORTEO [Suspect]
     Dosage: 20 UG, QD
  2. CALCIUM CARBONATE [Concomitant]
  3. VITAMIN TAB [Concomitant]
  4. FORTEO [Suspect]
     Indication: OSTEOPOROSIS
     Dosage: 20 UG, QD
     Dates: start: 20101101
  5. FORTEO [Suspect]
     Dosage: 20 UG, QD
  6. PREMARIN [Concomitant]
  7. FERROUS SULFATE TAB [Concomitant]
  8. SPIRIVA [Concomitant]
  9. LORAZEPAM [Concomitant]
  10. METOPROLOL TARTRATE [Concomitant]
  11. ENABLEX                            /01760402/ [Concomitant]

REACTIONS (5)
  - BACK PAIN [None]
  - JOINT DISLOCATION [None]
  - ARTHRITIS INFECTIVE [None]
  - HIP ARTHROPLASTY [None]
  - FALL [None]
